FAERS Safety Report 9292593 (Version 1)
Quarter: 2013Q2

REPORT INFORMATION
  Report Type: Report from Study
  Country: US (occurrence: US)
  Receive Date: 20130516
  Receipt Date: 20130516
  Transmission Date: 20140414
  Serious: Yes (Other)
  Sender: FDA-Public Use
  Company Number: US-JNJFOC-20130505028

PATIENT
  Sex: Female
  Weight: 58.97 kg

DRUGS (5)
  1. SIMPONI [Suspect]
     Indication: RHEUMATOID ARTHRITIS
     Route: 058
     Dates: start: 201111
  2. METHOTREXATE [Concomitant]
     Indication: RHEUMATOID ARTHRITIS
     Route: 048
     Dates: start: 2010
  3. FOLIC ACID [Concomitant]
     Route: 048
     Dates: start: 201111
  4. RECLAST [Concomitant]
     Indication: OSTEOPOROSIS
     Route: 042
     Dates: start: 201112
  5. ATACAND [Concomitant]
     Indication: BLOOD PRESSURE ABNORMAL
     Route: 048
     Dates: start: 2006

REACTIONS (4)
  - Abasia [Recovered/Resolved]
  - Dysstasia [Recovered/Resolved]
  - Product quality issue [Unknown]
  - Device malfunction [Recovered/Resolved]
